FAERS Safety Report 14555796 (Version 1)
Quarter: 2018Q1

REPORT INFORMATION
  Report Type: Spontaneous
  Country: US (occurrence: US)
  Receive Date: 20180221
  Receipt Date: 20180221
  Transmission Date: 20180509
  Serious: Yes (Other)
  Sender: FDA-Public Use
  Company Number: US-RICON PHARMA, LLC-RIC201802-000149

PATIENT
  Age: 11 Year
  Sex: Male

DRUGS (8)
  1. TRIAMCINOLONE ACETONIDE. [Suspect]
     Active Substance: TRIAMCINOLONE ACETONIDE
     Indication: PAIN
     Route: 014
  2. RITONAVIR. [Suspect]
     Active Substance: RITONAVIR
  3. ABACAVIR. [Concomitant]
     Active Substance: ABACAVIR
  4. HYDROCORTISONE. [Suspect]
     Active Substance: HYDROCORTISONE
     Route: 042
  5. EPZICOM [Concomitant]
     Active Substance: ABACAVIR SULFATE\LAMIVUDINE
  6. ATAZANAVIR. [Concomitant]
     Active Substance: ATAZANAVIR SULFATE
  7. HYDROCORTISONE. [Suspect]
     Active Substance: HYDROCORTISONE
  8. DIDANOSINE. [Concomitant]
     Active Substance: DIDANOSINE

REACTIONS (3)
  - Hypothalamic pituitary adrenal axis suppression [Unknown]
  - Drug interaction [Unknown]
  - Cushing^s syndrome [Unknown]
